FAERS Safety Report 21675652 (Version 1)
Quarter: 2022Q4

REPORT INFORMATION
  Report Type: Spontaneous
  Country: US (occurrence: None)
  Receive Date: 20221201
  Receipt Date: 20221201
  Transmission Date: 20230113
  Serious: Yes (Hospitalization)
  Sender: FDA-Public Use
  Company Number: None

PATIENT
  Age: 75 Year
  Sex: Male
  Weight: 113.4 kg

DRUGS (24)
  1. ABIRATERONE [Suspect]
     Active Substance: ABIRATERONE
     Indication: Prostate cancer
     Dosage: FREQUENCY : DAILY;?
     Route: 048
     Dates: start: 202209, end: 20221201
  2. PREDNISONE [Concomitant]
     Active Substance: PREDNISONE
  3. ACETAMINOPHEN [Concomitant]
  4. ALGAL OMEGA-3 [Concomitant]
  5. ALLERGY RELIEF [Concomitant]
  6. ALLOPURINOL [Concomitant]
  7. ARIPRAZOLE [Concomitant]
  8. BETAMETHASONE [Concomitant]
  9. CITALOPRAM [Concomitant]
  10. OMEPRAZOLE [Concomitant]
  11. DEGARELIX [Concomitant]
  12. DILTIAZEM [Concomitant]
  13. ELIQUIS [Concomitant]
  14. FLONASE [Concomitant]
  15. FOLIC ACID [Concomitant]
  16. KLOR-CON [Concomitant]
  17. LISINOPRIL-HYDROCHLOROTHIAZIDE [Concomitant]
  18. LORAZEPAM [Concomitant]
  19. METFORMIN [Concomitant]
  20. MILK THISTLE [Concomitant]
  21. PRAVASTATIN [Concomitant]
  22. SILDENAFIL CITRATE [Concomitant]
  23. TRAIMCINOLONE [Concomitant]
  24. YUCCA [Concomitant]

REACTIONS (1)
  - Hospitalisation [None]
